FAERS Safety Report 9523150 (Version 1)
Quarter: 2013Q3

REPORT INFORMATION
  Report Type: Spontaneous
  Country: US (occurrence: US)
  Receive Date: 20130913
  Receipt Date: 20130913
  Transmission Date: 20140515
  Serious: Yes (Hospitalization)
  Sender: FDA-Public Use
  Company Number: US-GLAXOSMITHKLINE-A1003737A

PATIENT
  Age: 65 Year
  Sex: Female

DRUGS (13)
  1. RYTHMOL IR [Suspect]
     Indication: PRODUCT USED FOR UNKNOWN INDICATION
     Dosage: 150MG THREE TIMES PER DAY
     Route: 065
     Dates: start: 2012
  2. PROPAFENONE HYDROCHLORIDE [Suspect]
     Indication: ATRIAL FIBRILLATION
     Dosage: 150MG THREE TIMES PER DAY
     Route: 048
     Dates: start: 201209
  3. RYTHMOL SR [Suspect]
     Indication: ATRIAL FIBRILLATION
     Dosage: 325MG TWICE PER DAY
     Route: 048
     Dates: start: 200807
  4. ESTRADIOL [Concomitant]
  5. SYNTHROID [Concomitant]
  6. GABAPENTIN [Concomitant]
  7. CYMBALTA [Concomitant]
  8. PRILOSEC [Concomitant]
  9. NEURONTIN [Concomitant]
  10. ASPIRIN [Concomitant]
  11. VITAMINS [Concomitant]
  12. FISH OIL [Concomitant]
  13. B COMPLEX [Concomitant]

REACTIONS (9)
  - Atrial fibrillation [Recovered/Resolved]
  - Drug ineffective [Unknown]
  - Drug intolerance [Unknown]
  - Chest pain [Recovered/Resolved]
  - Dyspnoea [Recovered/Resolved]
  - Lung disorder [Recovered/Resolved]
  - Ear pain [Recovered/Resolved]
  - Underdose [Recovered/Resolved]
  - Treatment noncompliance [Recovered/Resolved]
